FAERS Safety Report 5335133-9 (Version None)
Quarter: 2007Q2

REPORT INFORMATION
  Report Type: 
  Country: None (occurrence: None)
  Receive Date: 20070525
  Receipt Date: 20070522
  Transmission Date: 20071010
  Serious: Yes (Other)
  Sender: FDA-Public Use
  Company Number: US-GILEAD-2007-0012170

PATIENT
  Age: 71 Year
  Sex: Male

DRUGS (3)
  1. HEPSERA [Suspect]
  2. VITAMINS [Concomitant]
  3. DYAZIDE [Concomitant]
     Indication: HYPERTENSION

REACTIONS (1)
  - DEPRESSION [None]
